FAERS Safety Report 6803318-8 (Version None)
Quarter: 2010Q2

REPORT INFORMATION
  Report Type: 
  Country: None (occurrence: None)
  Receive Date: 20100628
  Receipt Date: 20100618
  Transmission Date: 20101027
  Serious: Yes (Death, Disabling, Other)
  Sender: FDA-Public Use
  Company Number: AU-AMGEN-QUU377020

PATIENT
  Sex: Male

DRUGS (1)
  1. ARANESP [Suspect]
     Indication: RENAL FAILURE CHRONIC
     Route: 058
     Dates: start: 20080708, end: 20091227

REACTIONS (6)
  - ANTI-ERYTHROPOIETIN ANTIBODY POSITIVE [None]
  - APLASIA PURE RED CELL [None]
  - BONE MARROW FAILURE [None]
  - CYTOMEGALOVIRUS INFECTION [None]
  - ENCEPHALITIS VIRAL [None]
  - NON-NEUTRALISING ANTIBODIES POSITIVE [None]
